FAERS Safety Report 16135109 (Version 1)
Quarter: 2019Q1

REPORT INFORMATION
  Report Type: Report from Study
  Country: ES (occurrence: ES)
  Receive Date: 20190329
  Receipt Date: 20190329
  Transmission Date: 20190418
  Serious: Yes (Life-Threatening, Hospitalization)
  Sender: FDA-Public Use
  Company Number: ES-MYLANLABS-2019M1028316

PATIENT
  Age: 69 Year
  Sex: Male

DRUGS (6)
  1. CLOPIDOGREL [Suspect]
     Active Substance: CLOPIDOGREL BISULFATE
     Indication: ISCHAEMIC CARDIOMYOPATHY
     Dosage: 75 MILLIGRAM, QD
     Route: 048
     Dates: start: 20171116, end: 20171116
  2. TROMALYT [Interacting]
     Active Substance: ASPIRIN
     Indication: ISCHAEMIC CARDIOMYOPATHY
     Dosage: 150 MILLIGRAM, QD
     Route: 048
     Dates: start: 20130108, end: 20171117
  3. CLEXANE [Interacting]
     Active Substance: ENOXAPARIN SODIUM
     Indication: ISCHAEMIC CARDIOMYOPATHY
     Dosage: 80 MILLIGRAM, QD
     Route: 058
     Dates: start: 20171116, end: 20171116
  4. TICAGRELOR. [Interacting]
     Active Substance: TICAGRELOR
     Indication: ISCHAEMIC CARDIOMYOPATHY
     Dosage: 180 MILLIGRAM, QD
     Route: 048
     Dates: start: 20171117, end: 20171117
  5. ROSUVASTATINA CALCICA [Concomitant]
     Indication: DYSLIPIDAEMIA
     Dosage: 20 MILLIGRAM, QD
     Route: 048
     Dates: start: 20140120, end: 20171118
  6. LERCANIDIPINO [Concomitant]
     Indication: HYPERTENSION
     Dosage: 20 MILLIGRAM, QD
     Route: 048
     Dates: start: 20160525, end: 20171118

REACTIONS (2)
  - Upper gastrointestinal haemorrhage [Recovered/Resolved]
  - Drug interaction [Unknown]

NARRATIVE: CASE EVENT DATE: 20171118
